FAERS Safety Report 5518842-8 (Version None)
Quarter: 2007Q4

REPORT INFORMATION
  Report Type: 
  Country: None (occurrence: None)
  Receive Date: 20071113
  Receipt Date: 20071029
  Transmission Date: 20080405
  Serious: Yes (Death, Hospitalization)
  Sender: FDA-Public Use
  Company Number: 2007EU002281

PATIENT
  Age: 49 Year
  Sex: Male
  Weight: 65 kg

DRUGS (7)
  1. PROGRAF [Suspect]
     Indication: TRANSPLANT
     Dosage: 7 MG, UID/QD, ORAL
     Route: 048
     Dates: start: 20070810
  2. CELLCEPT [Concomitant]
  3. ENCORTON            (PREDNISONE ACETATE) [Concomitant]
  4. EFFECTIN                  (BITOLTEROL MESILATE) [Concomitant]
  5. CORTICOSTEROIDS [Concomitant]
  6. CYCLOSPORINE [Concomitant]
  7. IMURAN [Concomitant]

REACTIONS (14)
  - ANAEMIA [None]
  - BLOOD CREATININE INCREASED [None]
  - BLOOD TESTOSTERONE DECREASED [None]
  - DEHYDRATION [None]
  - DEPRESSION [None]
  - DISSEMINATED INTRAVASCULAR COAGULATION [None]
  - HYPOTHYROIDISM [None]
  - IMMUNOSUPPRESSANT DRUG LEVEL DECREASED [None]
  - ORCHITIS [None]
  - PROTEIN TOTAL DECREASED [None]
  - PSYCHOTIC DISORDER [None]
  - PULMONARY OEDEMA [None]
  - SYSTEMIC LUPUS ERYTHEMATOSUS [None]
  - TREMOR [None]
